FAERS Safety Report 19025020 (Version 4)
Quarter: 2022Q4

REPORT INFORMATION
  Report Type: Spontaneous
  Country: FR (occurrence: FR)
  Receive Date: 20210318
  Receipt Date: 20221029
  Transmission Date: 20230112
  Serious: Yes (Hospitalization, Other)
  Sender: FDA-Public Use
  Company Number: FR-AFSSAPS-PA20210345

PATIENT
  Age: 52 Year
  Sex: Female
  Weight: 57 kg

DRUGS (6)
  1. ACETAMINOPHEN [Suspect]
     Active Substance: ACETAMINOPHEN
     Indication: COVID-19 pneumonia
     Dosage: UNK
     Route: 048
     Dates: start: 20210219, end: 20210219
  2. DEXAMETHASONE [Suspect]
     Active Substance: DEXAMETHASONE
     Indication: COVID-19 pneumonia
     Dosage: 6 MILLIGRAM, ONCE A DAY
     Route: 042
     Dates: start: 20210216, end: 20210220
  3. LOVENOX [Suspect]
     Active Substance: ENOXAPARIN SODIUM
     Indication: COVID-19 pneumonia
     Dosage: 4000 INTERNATIONAL UNIT, ONCE A DAY
     Route: 051
     Dates: start: 20210215, end: 20210219
  4. REMDESIVIR [Suspect]
     Active Substance: REMDESIVIR
     Indication: COVID-19 pneumonia
     Dosage: 200MG J1, 100MG J2, J3, J4
     Route: 042
     Dates: start: 20210216, end: 20210219
  5. REMDESIVIR [Suspect]
     Active Substance: REMDESIVIR
     Dosage: 200 MILLIGRAM(200 MG, 1X )
     Route: 042
     Dates: start: 20210216, end: 20210216
  6. REMDESIVIR [Suspect]
     Active Substance: REMDESIVIR
     Dosage: 100 MILLIGRAM(100 MG, QD (DAY 2-4 )
     Route: 042
     Dates: start: 20210217, end: 20210219

REACTIONS (1)
  - Hepatic cytolysis [Not Recovered/Not Resolved]

NARRATIVE: CASE EVENT DATE: 20210217
